FAERS Safety Report 14456105 (Version 2)
Quarter: 2018Q1

REPORT INFORMATION
  Report Type: Spontaneous
  Country: JP (occurrence: JP)
  Receive Date: 20180130
  Receipt Date: 20180302
  Transmission Date: 20180509
  Serious: Yes (Other)
  Sender: FDA-Public Use
  Company Number: JP-ORION CORPORATION ORION PHARMA-ENTC2018-0029

PATIENT
  Age: 48 Year
  Sex: Female

DRUGS (6)
  1. STALEVO [Suspect]
     Active Substance: CARBIDOPA\ENTACAPONE\LEVODOPA
     Indication: THERAPEUTIC RESPONSE SHORTENED
  2. APOKYN [Concomitant]
     Active Substance: APOMORPHINE HYDROCHLORIDE
     Route: 058
  3. FP [Concomitant]
     Active Substance: SELEGILINE HYDROCHLORIDE
     Dosage: (2 DIVIDED DOSES)
     Route: 065
  4. STALEVO [Suspect]
     Active Substance: CARBIDOPA\ENTACAPONE\LEVODOPA
     Indication: PARKINSON^S DISEASE
     Dosage: STRENGTH: 100/10/100 MG
     Route: 048
  5. NEUPRO [Concomitant]
     Active Substance: ROTIGOTINE
     Route: 065
  6. TRERIEF [Concomitant]
     Active Substance: ZONISAMIDE
     Route: 065

REACTIONS (3)
  - Therapeutic response shortened [Recovering/Resolving]
  - Pain [Recovering/Resolving]
  - Parkinson^s disease [Recovering/Resolving]
